FAERS Safety Report 12338145 (Version 5)
Quarter: 2016Q3

REPORT INFORMATION
  Report Type: Report from Study
  Country: US (occurrence: US)
  Receive Date: 20160505
  Receipt Date: 20160901
  Transmission Date: 20161109
  Serious: Yes (Hospitalization, Other)
  Sender: FDA-Public Use
  Company Number: US-BAYER-2016-035669

PATIENT
  Age: 45 Year
  Sex: Male

DRUGS (6)
  1. STIVARGA [Suspect]
     Active Substance: REGORAFENIB
     Indication: COLON CANCER
     Dosage: DAILY DOSE 120 MG
     Route: 048
     Dates: start: 20160521
  2. STIVARGA [Suspect]
     Active Substance: REGORAFENIB
     Indication: COLON CANCER
     Dosage: 160 MG, QD
     Route: 048
  3. STIVARGA [Suspect]
     Active Substance: REGORAFENIB
     Indication: COLON CANCER
     Dosage: 120 MG, QD
     Route: 048
     Dates: start: 20160209, end: 2016
  4. STIVARGA [Suspect]
     Active Substance: REGORAFENIB
     Indication: COLON CANCER
     Dosage: TOTAL DAILY DOSE: 40 MG, DOSE REGIMEN: TID
     Route: 048
     Dates: start: 2016
  5. STIVARGA [Suspect]
     Active Substance: REGORAFENIB
     Indication: RECTOSIGMOID CANCER
     Dosage: 120 MG, QD
     Route: 048
     Dates: start: 2016
  6. STIVARGA [Suspect]
     Active Substance: REGORAFENIB
     Indication: COLON CANCER
     Dosage: DAILY DOSE 160 MG
     Route: 048
     Dates: end: 201605

REACTIONS (17)
  - Oral pain [None]
  - Dry skin [None]
  - Erythema [None]
  - Pain in extremity [None]
  - Dysphonia [Not Recovered/Not Resolved]
  - Dysphagia [None]
  - Hospitalisation [None]
  - Pruritus [None]
  - Nausea [Not Recovered/Not Resolved]
  - Dysphonia [None]
  - Ocular hyperaemia [None]
  - Stomatitis [None]
  - Impaired healing [None]
  - Flushing [None]
  - Wound complication [None]
  - Blister [None]
  - Vomiting [None]

NARRATIVE: CASE EVENT DATE: 20160221
